FAERS Safety Report 16432732 (Version 1)
Quarter: 2019Q2

REPORT INFORMATION
  Report Type: Spontaneous
  Country: NL (occurrence: NL)
  Receive Date: 20190614
  Receipt Date: 20190614
  Transmission Date: 20190711
  Serious: Yes (Other)
  Sender: FDA-Public Use
  Company Number: NL-FRESENIUS KABI-FK201906607

PATIENT

DRUGS (1)
  1. PROPOFOL FRESENIUS (NOT SPECIFIED) [Suspect]
     Active Substance: PROPOFOL
     Indication: PRODUCT USED FOR UNKNOWN INDICATION
     Dosage: APROXIMATELY 7-8ML (140MG)
     Route: 040

REACTIONS (4)
  - Apnoea [Unknown]
  - Product administration error [Unknown]
  - Device issue [Unknown]
  - Blood pressure decreased [Unknown]
